FAERS Safety Report 8133825 (Version 5)
Quarter: 2013Q1

REPORT INFORMATION
  Report Type: Spontaneous
  Country: US (occurrence: US)
  Receive Date: 20110913
  Receipt Date: 20130315
  Transmission Date: 20140127
  Serious: Yes (Hospitalization)
  Sender: FDA-Public Use
  Company Number: US-GLAXOSMITHKLINE-A0897706A

PATIENT
  Age: 52 Year
  Sex: Female
  Weight: 106.8 kg

DRUGS (10)
  1. AVANDIA [Suspect]
     Indication: TYPE 2 DIABETES MELLITUS
     Dosage: 8MG PER DAY
     Route: 048
     Dates: start: 20000416, end: 20070713
  2. TOPROL XL [Concomitant]
  3. LANOXIN [Concomitant]
  4. ZESTRIL [Concomitant]
  5. LASIX [Concomitant]
  6. ASPIRIN [Concomitant]
  7. GLUCOTROL XL [Concomitant]
  8. NITROGLYCERIN [Concomitant]
  9. PULMICORT [Concomitant]
  10. ALDACTONE [Concomitant]

REACTIONS (2)
  - Supraventricular tachycardia [Not Recovered/Not Resolved]
  - Coronary artery disease [Unknown]
